FAERS Safety Report 6994617-8 (Version None)
Quarter: 2010Q3

REPORT INFORMATION
  Report Type: 
  Country: None (occurrence: None)
  Receive Date: 20100916
  Receipt Date: 20100916
  Transmission Date: 20110219
  Serious: No
  Sender: FDA-Public Use
  Company Number: None

PATIENT
  Age: 72 Year
  Weight: 63.5036 kg

DRUGS (1)
  1. CARBAMAZEPINE [Suspect]
     Indication: NEUROPATHY PERIPHERAL
     Dosage: CARBAMAZEPINE 200 MG BID PO
     Route: 048
     Dates: start: 20090901, end: 20100501

REACTIONS (1)
  - ASTERIXIS [None]
